FAERS Safety Report 5409734-3 (Version None)
Quarter: 2007Q3

REPORT INFORMATION
  Report Type: 
  Country: None (occurrence: None)
  Receive Date: 20070809
  Receipt Date: 20070801
  Transmission Date: 20080115
  Serious: Yes (Life-Threatening)
  Sender: FDA-Public Use
  Company Number: B0479501A

PATIENT
  Age: 77 Year
  Sex: Female

DRUGS (9)
  1. PAXIL [Suspect]
     Indication: DEPRESSION
     Dosage: 10MG PER DAY
     Route: 048
     Dates: start: 20070501, end: 20070711
  2. MICARDIS [Concomitant]
     Dosage: 320MG PER DAY
     Route: 048
     Dates: start: 20070711
  3. ALLOPURINOL [Concomitant]
     Dosage: 100MG PER DAY
     Route: 048
     Dates: start: 20070711
  4. ZANTAC 150 [Concomitant]
     Dosage: 150MG PER DAY
     Route: 048
     Dates: start: 20070711
  5. PURSENNID [Concomitant]
     Dosage: 12MG PER DAY
     Route: 048
     Dates: start: 20070711
  6. CNS STIMULANT-UNKNOWN [Concomitant]
     Route: 048
  7. UNKNOWN DRUG [Concomitant]
     Dosage: 81MG PER DAY
     Route: 048
     Dates: start: 20070711
  8. FOY [Concomitant]
  9. SOLU-MEDROL [Concomitant]
     Dates: start: 20070712

REACTIONS (1)
  - ACUTE HEPATIC FAILURE [None]
